FAERS Safety Report 16138368 (Version 1)
Quarter: 2019Q1

REPORT INFORMATION
  Report Type: Spontaneous
  Country: US (occurrence: US)
  Receive Date: 20190330
  Receipt Date: 20190330
  Transmission Date: 20190418
  Serious: Yes (Life-Threatening, Other)
  Sender: FDA-Public Use
  Company Number: US-ACCORD-116127

PATIENT
  Age: 10 Year
  Sex: Female

DRUGS (2)
  1. CARBOPLATIN. [Suspect]
     Active Substance: CARBOPLATIN
     Indication: MEDULLOBLASTOMA
  2. CISPLATIN. [Suspect]
     Active Substance: CISPLATIN
     Indication: MEDULLOBLASTOMA

REACTIONS (5)
  - Off label use [Unknown]
  - Chromosome analysis abnormal [Unknown]
  - Acute kidney injury [Unknown]
  - 5q minus syndrome [Unknown]
  - Acute myeloid leukaemia [Unknown]
